FAERS Safety Report 8088492-0 (Version None)
Quarter: 2012Q1

REPORT INFORMATION
  Report Type: 
  Country: None (occurrence: None)
  Receive Date: 20120128
  Receipt Date: 20110418
  Transmission Date: 20120608
  Serious: No
  Sender: FDA-Public Use
  Company Number: US-ABBOTT-11P-163-0719909-00

PATIENT
  Age: 74 Year
  Sex: Female

DRUGS (13)
  1. THEOPHYLLINE-SR [Concomitant]
     Indication: ASTHMA
  2. TRICOR [Concomitant]
     Indication: BLOOD CHOLESTEROL INCREASED
  3. LANSOPRAZOLE [Concomitant]
     Indication: HYPERTENSION
  4. POTASSIUM CHLORIDE [Concomitant]
     Indication: PRODUCT USED FOR UNKNOWN INDICATION
  5. LIPITOR [Concomitant]
     Indication: BLOOD CHOLESTEROL INCREASED
  6. ASPIRIN [Concomitant]
     Indication: BLOOD CHOLESTEROL INCREASED
  7. METHYLDOPA [Concomitant]
     Indication: HYPERTENSION
  8. AZITHROMYCIN [Concomitant]
     Indication: PSORIASIS
  9. HUMIRA [Suspect]
     Indication: PSORIASIS
     Dates: start: 20110301
  10. FOLPLEX [Concomitant]
     Indication: PRODUCT USED FOR UNKNOWN INDICATION
  11. TRIAMTERENE AND HYDROCHLOROTHIAZIDE [Concomitant]
     Indication: DIURETIC THERAPY
     Dosage: 37.5MG/25MG, DAILY
  12. FERROUS SULFATE OTC [Concomitant]
     Indication: SUPPLEMENTATION THERAPY
  13. INSULIN LENTE [Concomitant]
     Indication: TYPE 2 DIABETES MELLITUS

REACTIONS (2)
  - PSORIASIS [None]
  - EPISTAXIS [None]
